FAERS Safety Report 23588008 (Version 5)
Quarter: 2024Q4

REPORT INFORMATION
  Report Type: Spontaneous
  Country: CA (occurrence: CA)
  Receive Date: 20240301
  Receipt Date: 20241220
  Transmission Date: 20250114
  Serious: Yes (Life-Threatening, Other)
  Sender: CSL BEHRING
  Company Number: CA-BEH-2023158190

PATIENT
  Age: 64 Year
  Sex: Male
  Weight: 85 kg

DRUGS (12)
  1. ALBUREX [Suspect]
     Active Substance: ALBUMIN HUMAN
     Indication: Post procedural hypotension
     Dosage: 280 MILLILITER
     Route: 042
     Dates: start: 20230424, end: 20230424
  2. ALBUREX [Suspect]
     Active Substance: ALBUMIN HUMAN
     Dosage: 280 MILLILITER
     Route: 042
  3. ANCEF [Suspect]
     Active Substance: CEFAZOLIN SODIUM
     Dosage: 2 GRAM (X 1G ONCE)
     Route: 042
     Dates: start: 20230424, end: 20230424
  4. ANCEF [Suspect]
     Active Substance: CEFAZOLIN SODIUM
     Dosage: 2 GRAM (X 1G ONCE)
     Route: 042
     Dates: start: 20230424, end: 20230424
  5. CALCIUM CHLORIDE\MAGNESIUM CHLORIDE\POTASSIUM CHLORIDE\SODIUM CHLORIDE [Suspect]
     Active Substance: CALCIUM CHLORIDE\MAGNESIUM CHLORIDE\POTASSIUM CHLORIDE\SODIUM CHLORIDE\SODIUM LACTATE
     Indication: Hypotension
     Dosage: UNK
     Route: 042
     Dates: start: 20230424
  6. CALCIUM CHLORIDE\MAGNESIUM CHLORIDE\POTASSIUM CHLORIDE\SODIUM CHLORIDE [Suspect]
     Active Substance: CALCIUM CHLORIDE\MAGNESIUM CHLORIDE\POTASSIUM CHLORIDE\SODIUM CHLORIDE\SODIUM LACTATE
     Dosage: 700 ML ONCE
     Route: 042
     Dates: start: 20230424, end: 20230424
  7. EPHEDRINE [Concomitant]
     Active Substance: EPHEDRINE
     Dosage: 5 MILLIGRAM
     Route: 042
     Dates: start: 20230424
  8. EPHEDRINE [Concomitant]
     Active Substance: EPHEDRINE
     Dosage: 5 MILLIGRAM
     Route: 042
  9. PHENYLEPHRINE [Concomitant]
     Active Substance: PHENYLEPHRINE
     Dosage: 100 MICROGRAM
     Route: 042
     Dates: start: 20230424
  10. PHENYLEPHRINE [Concomitant]
     Active Substance: PHENYLEPHRINE
     Dosage: 100 MICROGRAM
     Route: 042
  11. OXYCODONE [Concomitant]
     Active Substance: OXYCODONE
     Dosage: 5 MILLIGRAM
     Route: 042
     Dates: start: 20230424
  12. OXYCODONE [Concomitant]
     Active Substance: OXYCODONE
     Dosage: 5 MILLIGRAM
     Route: 042

REACTIONS (21)
  - Anaphylactic reaction [Recovered/Resolved]
  - Pain [Recovered/Resolved]
  - Stoma site erythema [Recovered/Resolved]
  - Stoma site discharge [Recovered/Resolved]
  - Allergic transfusion reaction [Recovered/Resolved]
  - Blood pressure decreased [Recovered/Resolved]
  - Erythema [Recovered/Resolved]
  - Heart rate decreased [Recovered/Resolved]
  - Hypotension [Recovered/Resolved]
  - Hypoxia [Recovered/Resolved]
  - Oxygen saturation decreased [Recovered/Resolved]
  - Pain [Recovered/Resolved]
  - Pruritus [Recovered/Resolved]
  - Rash maculo-papular [Recovered/Resolved]
  - Chromaturia [Recovered/Resolved]
  - Tryptase increased [Unknown]
  - Hypoxia [Recovered/Resolved]
  - Hypotension [Recovered/Resolved]
  - Pruritus [Recovered/Resolved]
  - Erythema [Recovered/Resolved]
  - Rash maculo-papular [Recovered/Resolved]

NARRATIVE: CASE EVENT DATE: 20230424
